FAERS Safety Report 12666486 (Version 3)
Quarter: 2016Q4

REPORT INFORMATION
  Report Type: Spontaneous
  Country: US (occurrence: US)
  Receive Date: 20160819
  Receipt Date: 20161104
  Transmission Date: 20170207
  Serious: Yes (Other)
  Sender: FDA-Public Use
  Company Number: US-ASTRAZENECA-2016SE50292

PATIENT
  Age: 71 Year
  Sex: Female
  Weight: 99.8 kg

DRUGS (11)
  1. DOXEPIN [Concomitant]
     Active Substance: DOXEPIN
     Indication: DEPRESSION
     Route: 048
     Dates: start: 1991
  2. SYMBICORT [Suspect]
     Active Substance: BUDESONIDE\FORMOTEROL FUMARATE DIHYDRATE
     Indication: CHRONIC OBSTRUCTIVE PULMONARY DISEASE
     Dosage: 160/4.5 MICROGRAMS, 2 PUFFS TWO TIMES A DAY
     Route: 055
     Dates: start: 2014
  3. OMEPRAZOLE. [Suspect]
     Active Substance: OMEPRAZOLE
     Indication: DYSPHONIA
     Route: 048
     Dates: start: 20160127
  4. OMEPRAZOLE. [Concomitant]
     Active Substance: OMEPRAZOLE
     Indication: RHINORRHOEA
     Route: 048
     Dates: start: 20160427, end: 2016
  5. OMEPRAZOLE. [Concomitant]
     Active Substance: OMEPRAZOLE
     Indication: CATARRH
     Route: 048
     Dates: start: 20160427, end: 2016
  6. ZOPINEX [Concomitant]
     Indication: CHRONIC OBSTRUCTIVE PULMONARY DISEASE
     Dosage: THREE TIMES A DAY
     Route: 055
     Dates: start: 2009
  7. FLUTICASONE [Concomitant]
     Active Substance: FLUTICASONE\FLUTICASONE PROPIONATE
     Dosage: 50 MCG TWO SPRAYS EACH NOSE
     Route: 045
     Dates: end: 2016
  8. OMEPRAZOLE. [Concomitant]
     Active Substance: OMEPRAZOLE
     Indication: DYSPHONIA
     Route: 048
     Dates: start: 20160427, end: 2016
  9. PULMICORT FLEXHALER [Suspect]
     Active Substance: BUDESONIDE
     Indication: CHRONIC OBSTRUCTIVE PULMONARY DISEASE
     Route: 055
     Dates: end: 2014
  10. RANITIDINE. [Concomitant]
     Active Substance: RANITIDINE
     Indication: GASTROINTESTINAL DISORDER
  11. SPIRIVA [Concomitant]
     Active Substance: TIOTROPIUM BROMIDE MONOHYDRATE
     Indication: CHRONIC OBSTRUCTIVE PULMONARY DISEASE
     Route: 055
     Dates: start: 2009

REACTIONS (24)
  - Tooth loss [Unknown]
  - Product use issue [Unknown]
  - Abasia [Unknown]
  - Limb injury [Unknown]
  - Fall [Unknown]
  - Dyspnoea [Unknown]
  - Stomatitis [Not Recovered/Not Resolved]
  - Joint swelling [Unknown]
  - Road traffic accident [Unknown]
  - Dysphonia [Unknown]
  - Off label use [Unknown]
  - Dry mouth [Not Recovered/Not Resolved]
  - Loose tooth [Unknown]
  - Toothache [Unknown]
  - Memory impairment [Not Recovered/Not Resolved]
  - Catarrh [Not Recovered/Not Resolved]
  - Dysphonia [Not Recovered/Not Resolved]
  - Weight increased [Not Recovered/Not Resolved]
  - Sleep apnoea syndrome [Unknown]
  - Eating disorder [Unknown]
  - Nausea [Unknown]
  - Abdominal discomfort [Unknown]
  - Epistaxis [Unknown]
  - Spinal fracture [Unknown]

NARRATIVE: CASE EVENT DATE: 2014
